FAERS Safety Report 16569663 (Version 3)
Quarter: 2025Q3

REPORT INFORMATION
  Report Type: Spontaneous
  Country: EU (occurrence: EU)
  Receive Date: 20190715
  Receipt Date: 20250724
  Transmission Date: 20251021
  Serious: Yes (Hospitalization, Other)
  Sender: AUROBINDO
  Company Number: EU-AUROBINDO-AUR-APL-2019-039929

PATIENT
  Age: 52 Year
  Sex: Male

DRUGS (10)
  1. TENOFOVIR DISOPROXIL [Suspect]
     Active Substance: TENOFOVIR DISOPROXIL
     Indication: Antiretroviral therapy
     Dosage: 300 MILLIGRAM, ONCE A DAY
     Route: 065
  2. TENOFOVIR DISOPROXIL [Suspect]
     Active Substance: TENOFOVIR DISOPROXIL
     Indication: HIV infection
  3. DARUNAVIR [Suspect]
     Active Substance: DARUNAVIR
     Indication: Antiretroviral therapy
     Dosage: 800 MILLIGRAM, ONCE A DAY
     Route: 065
  4. DARUNAVIR [Suspect]
     Active Substance: DARUNAVIR
     Indication: HIV infection
  5. RITONAVIR [Suspect]
     Active Substance: RITONAVIR
     Indication: Antiretroviral therapy
     Dosage: 100 MILLIGRAM, ONCE A DAY
     Route: 065
  6. RITONAVIR [Suspect]
     Active Substance: RITONAVIR
     Indication: HIV infection
  7. LAMIVUDINE\ZIDOVUDINE [Suspect]
     Active Substance: LAMIVUDINE\ZIDOVUDINE
     Indication: Antiretroviral therapy
     Dosage: UNK UNK, TWO TIMES A DAY ((150/300 MG TWICE A DAY),)
     Route: 065
  8. LAMIVUDINE\ZIDOVUDINE [Suspect]
     Active Substance: LAMIVUDINE\ZIDOVUDINE
     Indication: HIV infection
  9. EMTRICITABINE\TENOFOVIR DISOPROXIL FUMARATE [Suspect]
     Active Substance: EMTRICITABINE\TENOFOVIR DISOPROXIL FUMARATE
     Indication: HIV infection
     Dosage: UNK UNK, ONCE A DAY (200MG/300MG/DAY)
     Route: 065
  10. ATAZANAVIR [Concomitant]
     Active Substance: ATAZANAVIR
     Indication: HIV infection
     Route: 065

REACTIONS (12)
  - Confusional state [Recovered/Resolved]
  - Relapsing fever [Recovered/Resolved]
  - Nervous system disorder [Recovered/Resolved]
  - Encephalitis [Recovered/Resolved]
  - Cranial nerve palsies multiple [Recovered/Resolved]
  - Immune reconstitution inflammatory syndrome [Recovered/Resolved]
  - Headache [Recovered/Resolved]
  - Cerebellar syndrome [Recovered/Resolved]
  - Psychomotor retardation [Recovered/Resolved]
  - Pathogen resistance [Recovered/Resolved]
  - Pleocytosis [Recovered/Resolved]
  - Hyperproteinaemia [Recovered/Resolved]
